FAERS Safety Report 22657269 (Version 1)
Quarter: 2023Q2

REPORT INFORMATION
  Report Type: Spontaneous
  Country: AU (occurrence: AU)
  Receive Date: 20230630
  Receipt Date: 20230630
  Transmission Date: 20230721
  Serious: Yes (Hospitalization, Other)
  Sender: FDA-Public Use
  Company Number: AU-009507513-2306AUS011624

PATIENT
  Age: 70 Year
  Sex: Male

DRUGS (3)
  1. KEYTRUDA [Suspect]
     Active Substance: PEMBROLIZUMAB
     Indication: Malignant melanoma stage III
     Dosage: 18 CYCLES
     Dates: start: 2016
  2. IPILIMUMAB [Suspect]
     Active Substance: IPILIMUMAB
     Dosage: UNK
     Dates: start: 2022
  3. NIVOLUMAB [Suspect]
     Active Substance: NIVOLUMAB
     Dosage: UNK
     Dates: start: 2022

REACTIONS (5)
  - Melanoma recurrent [Unknown]
  - Malignant neoplasm progression [Unknown]
  - Arthritis [Unknown]
  - Colitis [Unknown]
  - Bone lesion [Unknown]

NARRATIVE: CASE EVENT DATE: 20220101
